FAERS Safety Report 16746137 (Version 1)
Quarter: 2019Q3

REPORT INFORMATION
  Report Type: Spontaneous
  Country: US (occurrence: US)
  Receive Date: 20190827
  Receipt Date: 20190827
  Transmission Date: 20191005
  Serious: No
  Sender: FDA-Public Use
  Company Number: US-ABBVIE-19K-163-2749273-00

PATIENT
  Sex: Male

DRUGS (1)
  1. MAVYRET [Suspect]
     Active Substance: GLECAPREVIR\PIBRENTASVIR
     Indication: ORGAN DONOR
     Route: 048

REACTIONS (2)
  - Pruritus [Recovering/Resolving]
  - Skin haemorrhage [Recovering/Resolving]

NARRATIVE: CASE EVENT DATE: 2019
